FAERS Safety Report 6510782-0 (Version None)
Quarter: 2009Q4

REPORT INFORMATION
  Report Type: 
  Country: None (occurrence: None)
  Receive Date: 20091222
  Receipt Date: 20091210
  Transmission Date: 20100525
  Serious: Yes (Hospitalization, Other)
  Sender: FDA-Public Use
  Company Number: JP-ROCHE-558883

PATIENT
  Sex: Female
  Weight: 52 kg

DRUGS (20)
  1. TRASTUZUMAB [Suspect]
     Indication: BREAST CANCER METASTATIC
     Dosage: DOSE DECREASED.
     Route: 041
     Dates: start: 20070329, end: 20070329
  2. TRASTUZUMAB [Suspect]
     Route: 041
     Dates: start: 20070405
  3. TRASTUZUMAB [Suspect]
     Route: 041
  4. TAXOTERE [Suspect]
     Indication: BREAST CANCER METASTATIC
     Route: 041
     Dates: start: 20070329
  5. SEPAZON [Suspect]
     Indication: DEPRESSION
     Route: 048
  6. TAGAMET [Suspect]
     Indication: GASTRIC ULCER
     Route: 048
     Dates: end: 20081004
  7. CARDENALIN [Suspect]
     Indication: HYPERTENSION
     Route: 048
     Dates: end: 20081004
  8. NORVASC [Suspect]
     Indication: HYPERTENSION
     Route: 048
     Dates: end: 20081004
  9. CALONAL [Suspect]
     Indication: HEADACHE
     Dosage: NOTE: SINGLE USE.
     Route: 048
  10. ONON [Suspect]
     Indication: ASTHMA
     Route: 048
     Dates: end: 20081004
  11. DECADRON [Suspect]
     Indication: PREMEDICATION
     Dosage: ROUTE: INTRAVENOUS (NOT OTHERWISE SPECIFIED).
     Route: 050
     Dates: start: 20070329
  12. LENDORMIN [Suspect]
     Route: 048
     Dates: start: 20070510, end: 20081004
  13. LOXONIN [Suspect]
     Dosage: FORM: ORAL FORMULATION (NOT OTHERWISE SPECIFIED). NOTE: SINGLE USE.
     Route: 048
     Dates: start: 20070713
  14. DEPAS [Suspect]
     Dosage: NOTE: SINGLE USE.
     Route: 048
     Dates: start: 20070811
  15. TRYPTANOL [Suspect]
     Indication: DEPRESSION
     Route: 048
     Dates: start: 20080111, end: 20081004
  16. DESYREL [Concomitant]
     Route: 048
  17. ROHYPNOL [Concomitant]
     Dosage: NOTE: SINGLE USE.
     Route: 048
     Dates: end: 20070509
  18. RIVOTRIL [Concomitant]
     Route: 048
     Dates: start: 20070531, end: 20070614
  19. PARIET [Concomitant]
     Route: 048
     Dates: start: 20070831, end: 20071226
  20. CIPROXAN [Concomitant]
     Route: 048
     Dates: start: 20070405, end: 20070413

REACTIONS (41)
  - ABDOMINAL DISTENSION [None]
  - ALOPECIA [None]
  - CHEST DISCOMFORT [None]
  - COUGH [None]
  - DECREASED APPETITE [None]
  - DEPRESSION [None]
  - DIARRHOEA [None]
  - DIZZINESS [None]
  - DYSGEUSIA [None]
  - ENTEROCOLITIS [None]
  - EPISTAXIS [None]
  - EYELIDS PRURITUS [None]
  - GASTROENTERITIS [None]
  - HAEMATOCRIT DECREASED [None]
  - HAEMOGLOBIN DECREASED [None]
  - HERPES VIRUS INFECTION [None]
  - HORDEOLUM [None]
  - INFECTED EPIDERMAL CYST [None]
  - INTERVERTEBRAL DISC PROTRUSION [None]
  - IRRITABLE BOWEL SYNDROME [None]
  - LACRIMATION INCREASED [None]
  - MALAISE [None]
  - MUSCLE SPASMS [None]
  - NAIL DISORDER [None]
  - NASOPHARYNGITIS [None]
  - NAUSEA [None]
  - NEUTROPHIL COUNT DECREASED [None]
  - OCULAR HYPERAEMIA [None]
  - ORAL HERPES [None]
  - PAIN IN EXTREMITY [None]
  - PAIN OF SKIN [None]
  - PARONYCHIA [None]
  - PHLEBITIS [None]
  - RASH [None]
  - RED BLOOD CELL COUNT DECREASED [None]
  - SOMNOLENCE [None]
  - STOMATITIS [None]
  - VOMITING [None]
  - WEIGHT INCREASED [None]
  - WHITE BLOOD CELL COUNT DECREASED [None]
  - WOUND [None]
